FAERS Safety Report 26065344 (Version 1)
Quarter: 2025Q4

REPORT INFORMATION
  Report Type: Spontaneous
  Country: CA (occurrence: CA)
  Receive Date: 20251119
  Receipt Date: 20251119
  Transmission Date: 20260118
  Serious: Yes (Other)
  Sender: TEVA
  Company Number: CA-TEVA-VS-3392755

PATIENT
  Age: 39 Year
  Sex: Female

DRUGS (3)
  1. CARBOPLATIN [Suspect]
     Active Substance: CARBOPLATIN
     Indication: Product used for unknown indication
     Dosage: DOSE FORM : SOLUTION INTRAVENOUS
     Route: 065
  2. DOSTARLIMAB [Suspect]
     Active Substance: DOSTARLIMAB
     Indication: Rash
     Dosage: DOSE FORM :SOLUTION INTRAVENOUS
     Route: 065
  3. PACLITAXEL [Suspect]
     Active Substance: PACLITAXEL
     Indication: Product used for unknown indication
     Dosage: DOSE FORM :LIQUID INTRAVENOUS
     Route: 065

REACTIONS (3)
  - Rash [Unknown]
  - Pyrexia [Unknown]
  - Oral disorder [Unknown]
